FAERS Safety Report 20513218 (Version 1)
Quarter: 2022Q1

REPORT INFORMATION
  Report Type: Spontaneous
  Country: US (occurrence: US)
  Receive Date: 20220224
  Receipt Date: 20220224
  Transmission Date: 20220423
  Serious: No
  Sender: FDA-Public Use
  Company Number: US-AMNEAL PHARMACEUTICALS-2021-AMRX-01609

PATIENT
  Sex: Female

DRUGS (1)
  1. RYTARY [Suspect]
     Active Substance: CARBIDOPA\LEVODOPA
     Indication: Product used for unknown indication
     Dosage: 10 CAPSULES, DAILY (4 CAPSULES FOR 1ST DOSE, 3 CPASULES FOR 2ND DOSE, 3 CAPSULES FOR 3RD DOSE
     Route: 048

REACTIONS (1)
  - Drug ineffective [Unknown]
